FAERS Safety Report 4889052-2 (Version None)
Quarter: 2005Q4

REPORT INFORMATION
  Report Type: 
  Country: None (occurrence: None)
  Receive Date: 20051215
  Receipt Date: 20050411
  Transmission Date: 20060501
  Serious: Yes (Hospitalization)
  Sender: FDA-Public Use
  Company Number: 2005057536

PATIENT
  Age: 57 Year
  Sex: Female

DRUGS (3)
  1. BEXTRA [Suspect]
     Indication: ARTHRITIS
     Dosage: 10 MG (10 MG, 1 IN 1 D), ORAL
     Route: 048
     Dates: start: 20030101, end: 20031101
  2. PIOGLITAZONE HCL [Concomitant]
  3. METFORMIN HCL [Concomitant]

REACTIONS (1)
  - ATRIAL FIBRILLATION [None]
